FAERS Safety Report 9587948 (Version 2)
Quarter: 2013Q4

REPORT INFORMATION
  Report Type: Report from Study
  Country: TW (occurrence: TW)
  Receive Date: 20131003
  Receipt Date: 20131021
  Transmission Date: 20140711
  Serious: No
  Sender: FDA-Public Use
  Company Number: PHHY2012TW112807

PATIENT
  Age: 46 Year
  Sex: Male

DRUGS (14)
  1. AMN107 [Suspect]
     Dosage: UNK
  2. EXTRACOMB [Concomitant]
     Indication: ECZEMA
     Dosage: UNK
     Dates: start: 20100519, end: 20101003
  3. LOPERAMIDE [Concomitant]
     Indication: DIARRHOEA
     Dosage: UNK
     Dates: start: 20100614, end: 20101010
  4. LOPERAMIDE [Concomitant]
     Dosage: UNK
     Dates: start: 20101227, end: 20110310
  5. LOPERAMIDE [Concomitant]
     Dosage: UNK
     Dates: start: 20110321
  6. ZOPICLONE [Concomitant]
     Indication: INSOMNIA
     Dosage: UNK
     Dates: start: 20100712, end: 20100822
  7. ZOPICLONE [Concomitant]
     Dosage: UNK
     Dates: start: 20120507
  8. CORTENEMA [Concomitant]
     Indication: COLITIS
     Dosage: UNK
     Dates: start: 20100920, end: 20100926
  9. ACETAMINOPHEN [Concomitant]
     Indication: TOOTHACHE
     Dosage: UNK
     Dates: start: 20101129, end: 20101205
  10. DANZEN [Concomitant]
     Indication: VOCAL CORD THICKENING
     Dosage: UNK
     Dates: start: 20101101, end: 20101107
  11. RHIN [Concomitant]
     Indication: UPPER RESPIRATORY TRACT INFECTION
     Dosage: UNK
     Dates: start: 20110221, end: 20110722
  12. DOMPERIDONE [Concomitant]
     Indication: DECREASED APPETITE
     Dosage: UNK
     Dates: start: 20110613, end: 20111017
  13. DIOSMECTITE [Concomitant]
     Indication: DIARRHOEA
     Dosage: UNK
     Dates: start: 20110613, end: 20110814
  14. COLCHICINE [Concomitant]
     Indication: GOUT
     Dosage: UNK
     Dates: start: 20111003

REACTIONS (1)
  - Pyrexia [Unknown]
